FAERS Safety Report 4664190-8 (Version None)
Quarter: 2005Q2

REPORT INFORMATION
  Report Type: 
  Country: None (occurrence: None)
  Receive Date: 20050516
  Receipt Date: 20050425
  Transmission Date: 20051028
  Serious: Yes (Other)
  Sender: FDA-Public Use
  Company Number: CA_050408077

PATIENT
  Age: 10 Year
  Sex: Male

DRUGS (3)
  1. STRATTERA [Suspect]
     Indication: AUTISM SPECTRUM DISORDER
     Dosage: 18 MG
     Dates: start: 20050419
  2. RISPERIDONE [Concomitant]
  3. NOVOCAIN (PROCAINE HYDROCHLORIDE) [Concomitant]

REACTIONS (3)
  - AGGRESSION [None]
  - FEELING ABNORMAL [None]
  - PHYSICAL ASSAULT [None]
